FAERS Safety Report 24816015 (Version 1)
Quarter: 2025Q1

REPORT INFORMATION
  Report Type: Spontaneous
  Country: US (occurrence: None)
  Receive Date: 20250107
  Receipt Date: 20250107
  Transmission Date: 20250408
  Serious: Yes (Hospitalization)
  Sender: FDA-CTU
  Company Number: None

PATIENT
  Age: 73 Year
  Sex: Female

DRUGS (20)
  1. BOTOX [Suspect]
     Active Substance: ONABOTULINUMTOXINA
     Indication: Migraine
     Route: 030
     Dates: start: 20240529
  2. HYDRALAZINE [Concomitant]
     Active Substance: HYDRALAZINE HYDROCHLORIDE
  3. ATORVASTATIN [Concomitant]
     Active Substance: ATORVASTATIN
  4. ELIQUIS [Concomitant]
     Active Substance: APIXABAN
  5. FENTANYL [Concomitant]
     Active Substance: FENTANYL
  6. GABAPENTIN [Concomitant]
     Active Substance: GABAPENTIN
  7. HYDROMORPHONE [Concomitant]
     Active Substance: HYDROMORPHONE
  8. ISOSORBIDE MONONITRATE [Concomitant]
     Active Substance: ISOSORBIDE MONONITRATE
  9. LABETALOL [Concomitant]
     Active Substance: LABETALOL
  10. MAGNESIUM OXIDE [Concomitant]
     Active Substance: MAGNESIUM OXIDE
  11. METOPROLOL SUCCINATE [Concomitant]
     Active Substance: METOPROLOL SUCCINATE
  12. PANTOPRAZOLE [Concomitant]
     Active Substance: PANTOPRAZOLE
  13. RAMIPRIL [Concomitant]
     Active Substance: RAMIPRIL
  14. SYSTANE LUB EYE DROPS [Concomitant]
  15. THIORIDAZINE [Concomitant]
     Active Substance: THIORIDAZINE
  16. TIZANIDINE [Concomitant]
     Active Substance: TIZANIDINE
  17. TOPIRAMATE [Concomitant]
     Active Substance: TOPIRAMATE
  18. TRAVATAN [Concomitant]
     Active Substance: TRAVOPROST
  19. VITAMIN D [Concomitant]
     Active Substance: VITAMIN D NOS
  20. VITAMIN E [Concomitant]
     Active Substance: .ALPHA.-TOCOPHEROL

REACTIONS (2)
  - Staphylococcal infection [None]
  - Pulmonary oedema [None]

NARRATIVE: CASE EVENT DATE: 20241101
